FAERS Safety Report 25166140 (Version 1)
Quarter: 2025Q2

REPORT INFORMATION
  Report Type: Spontaneous
  Country: JP (occurrence: JP)
  Receive Date: 20250407
  Receipt Date: 20250407
  Transmission Date: 20250716
  Serious: Yes (Other)
  Sender: MERCK SHARP AND DOHME
  Company Number: JP-MSD-2411JPN001309J

PATIENT
  Age: 77 Year
  Sex: Male

DRUGS (1)
  1. KEYTRUDA [Suspect]
     Active Substance: PEMBROLIZUMAB
     Indication: Head and neck cancer
     Route: 065
     Dates: start: 20200615

REACTIONS (1)
  - Immune-mediated mucositis [Unknown]

NARRATIVE: CASE EVENT DATE: 20210410
